FAERS Safety Report 8905636 (Version 1)
Quarter: 2012Q4

REPORT INFORMATION
  Report Type: 
  Country: US (occurrence: US)
  Receive Date: 20121113
  Receipt Date: 20121113
  Transmission Date: 20130627
  Serious: No
  Sender: FDA-Public Use
  Company Number: US-ASTRAZENECA-2012SE84791

PATIENT
  Sex: Female
  Weight: 67.6 kg

DRUGS (7)
  1. SYMBICORT [Suspect]
     Indication: ASTHMA
     Dosage: 160/4.5 MCG, 2 PUFFS DAILY
     Route: 055
  2. OMEPRAZOLE [Suspect]
     Indication: GASTROINTESTINAL DISORDER
     Route: 048
  3. ALBUTEROL [Concomitant]
     Indication: ASTHMA
     Dosage: Q4-6H
     Route: 055
  4. ESTRADIOL [Concomitant]
     Indication: HORMONE REPLACEMENT THERAPY
     Route: 048
  5. ESTRIOL [Concomitant]
     Indication: HORMONE REPLACEMENT THERAPY
     Route: 048
  6. PROGESTERONE [Concomitant]
     Indication: HORMONE REPLACEMENT THERAPY
     Route: 048
  7. PREDNISONE [Concomitant]
     Indication: ASTHMA
     Route: 048

REACTIONS (5)
  - Dyspnoea [Unknown]
  - Chest discomfort [Unknown]
  - Gait disturbance [Unknown]
  - Dysphonia [Unknown]
  - Intentional drug misuse [Unknown]
